FAERS Safety Report 5499930-1 (Version None)
Quarter: 2007Q4

REPORT INFORMATION
  Report Type: 
  Country: None (occurrence: None)
  Receive Date: 20071026
  Receipt Date: 20071016
  Transmission Date: 20080405
  Serious: Yes (Other)
  Sender: FDA-Public Use
  Company Number: IN-PFIZER INC-2007087959

PATIENT
  Age: 27 Year
  Sex: Male

DRUGS (1)
  1. DOLONEX DT [Suspect]
     Indication: PAIN
     Route: 048

REACTIONS (1)
  - GENITAL DISCOMFORT [None]
